FAERS Safety Report 11839593 (Version 2)
Quarter: 2016Q1

REPORT INFORMATION
  Report Type: Report from Study
  Country: JP (occurrence: JP)
  Receive Date: 20151216
  Receipt Date: 20160302
  Transmission Date: 20160525
  Serious: Yes (Hospitalization)
  Sender: FDA-Public Use
  Company Number: JP-ROCHE-1676251

PATIENT
  Age: 3 Year
  Sex: Male

DRUGS (20)
  1. TACROLIMUS HYDRATE [Suspect]
     Active Substance: TACROLIMUS
     Route: 048
     Dates: start: 20150107, end: 20150603
  2. RITUXIMAB [Suspect]
     Active Substance: RITUXIMAB
     Indication: NEPHROTIC SYNDROME
     Route: 042
     Dates: start: 20140917, end: 20140917
  3. TACROLIMUS HYDRATE [Suspect]
     Active Substance: TACROLIMUS
     Route: 048
     Dates: start: 20150605
  4. MYCOPHENOLATE MOFETIL. [Suspect]
     Active Substance: MYCOPHENOLATE MOFETIL
     Route: 048
     Dates: start: 20141120, end: 20150603
  5. MYCOPHENOLATE MOFETIL. [Suspect]
     Active Substance: MYCOPHENOLATE MOFETIL
     Route: 048
     Dates: start: 20150605
  6. POLARAMINE [Concomitant]
     Active Substance: DEXCHLORPHENIRAMINE MALEATE
     Indication: PREMEDICATION
     Route: 048
     Dates: start: 20140917, end: 20140917
  7. NEORAL [Concomitant]
     Active Substance: CYCLOSPORINE
     Indication: NEPHROTIC SYNDROME
     Route: 048
     Dates: end: 20141120
  8. CALONAL [Concomitant]
     Active Substance: ACETAMINOPHEN
     Indication: PREMEDICATION
     Route: 048
     Dates: start: 20140917, end: 20140917
  9. MUCOSTA [Concomitant]
     Active Substance: REBAMIPIDE
     Indication: PROPHYLAXIS
     Route: 048
     Dates: end: 20150221
  10. RITUXIMAB [Suspect]
     Active Substance: RITUXIMAB
     Dosage: SINGLE DOSE
     Route: 042
     Dates: start: 20140227, end: 20140227
  11. TACROLIMUS HYDRATE [Suspect]
     Active Substance: TACROLIMUS
     Indication: NEPHROTIC SYNDROME
     Route: 048
     Dates: start: 20141120, end: 20141125
  12. TACROLIMUS HYDRATE [Suspect]
     Active Substance: TACROLIMUS
     Route: 048
     Dates: start: 20141225, end: 20150106
  13. METHYLPREDNISOLONE SODIUM SUCCINATE. [Concomitant]
     Active Substance: METHYLPREDNISOLONE SODIUM SUCCINATE
     Indication: PREMEDICATION
     Route: 042
     Dates: start: 20140917, end: 20140917
  14. TACROLIMUS HYDRATE [Suspect]
     Active Substance: TACROLIMUS
     Route: 048
     Dates: start: 20141126, end: 20141210
  15. TACROLIMUS HYDRATE [Suspect]
     Active Substance: TACROLIMUS
     Route: 048
     Dates: start: 20141211, end: 20141224
  16. BLOPRESS [Concomitant]
     Active Substance: CANDESARTAN CILEXETIL
     Indication: PROPHYLAXIS
     Route: 048
     Dates: end: 20150304
  17. PREDNISOLONE. [Concomitant]
     Active Substance: PREDNISOLONE
     Dosage: DAILY 30-5 MG
     Route: 048
     Dates: end: 20150221
  18. MYCOPHENOLATE MOFETIL. [Suspect]
     Active Substance: MYCOPHENOLATE MOFETIL
     Indication: NEPHROTIC SYNDROME
     Route: 048
     Dates: end: 20141022
  19. MYCOPHENOLATE MOFETIL. [Suspect]
     Active Substance: MYCOPHENOLATE MOFETIL
     Route: 048
     Dates: start: 20141023, end: 20141119
  20. PREDNISOLONE. [Concomitant]
     Active Substance: PREDNISOLONE
     Indication: NEPHROTIC SYNDROME
     Route: 048
     Dates: start: 20140908, end: 20140928

REACTIONS (4)
  - Vomiting [Recovered/Resolved]
  - Pyrexia [Recovered/Resolved]
  - Upper respiratory tract inflammation [Recovered/Resolved]
  - Abdominal pain [Recovered/Resolved]

NARRATIVE: CASE EVENT DATE: 20150324
